FAERS Safety Report 4611598-2 (Version None)
Quarter: 2005Q1

REPORT INFORMATION
  Report Type: 
  Country: None (occurrence: None)
  Receive Date: 20050317
  Receipt Date: 20050310
  Transmission Date: 20050727
  Serious: Yes (Other)
  Sender: FDA-Public Use
  Company Number: GB-GLAXOSMITHKLINE-B0374322A

PATIENT
  Sex: Female

DRUGS (3)
  1. LEUKERAN [Suspect]
     Indication: DRUG USE FOR UNKNOWN INDICATION
     Route: 048
     Dates: start: 20050308
  2. ALLOPURINOL [Concomitant]
  3. FENOFIBRATE [Concomitant]

REACTIONS (5)
  - CONFUSIONAL STATE [None]
  - EXTRAPYRAMIDAL DISORDER [None]
  - MUSCULAR WEAKNESS [None]
  - NEUROTOXICITY [None]
  - TREMOR [None]
